FAERS Safety Report 22684869 (Version 4)
Quarter: 2024Q1

REPORT INFORMATION
  Report Type: Spontaneous
  Country: US (occurrence: US)
  Receive Date: 20230710
  Receipt Date: 20240205
  Transmission Date: 20240409
  Serious: Yes (Other)
  Sender: FDA-Public Use
  Company Number: US-BRISTOL-MYERS SQUIBB COMPANY-2023-078020

PATIENT
  Age: 72 Year
  Sex: Female

DRUGS (3)
  1. POMALYST [Suspect]
     Active Substance: POMALIDOMIDE
     Indication: Plasma cell myeloma
     Dosage: FREQ: EVERY DAY ON DAYS 1-21, TAKE 1 CAPSULE BY MOUTH WHOLE WITH
     Route: 048
     Dates: start: 20230508, end: 20230602
  2. POMALYST [Suspect]
     Active Substance: POMALIDOMIDE
     Dosage: FREQUENCY- TAKE 1 CAPSULE BY MOUTH DAILY W/ OR W/O FOOD AT THE SAME TIME DAILY FOR 21 DAYS EVERY 28
     Route: 048
  3. POMALYST [Suspect]
     Active Substance: POMALIDOMIDE
     Dosage: FREQUENCY- TAKE 1 CAPSULE BY MOUTH DAILY W/ OR W/O FOOD AT THE SAME TIME DAILY FOR 21 DAYS EVERY 28
     Route: 048

REACTIONS (5)
  - White blood cell count decreased [Recovering/Resolving]
  - Red blood cell abnormality [Recovered/Resolved]
  - Arthritis [Recovered/Resolved]
  - Fatigue [Recovered/Resolved]
  - Constipation [Recovering/Resolving]
